FAERS Safety Report 9301166 (Version 2)
Quarter: 2013Q4

REPORT INFORMATION
  Report Type: Spontaneous
  Country: US (occurrence: US)
  Receive Date: 20130521
  Receipt Date: 20131112
  Transmission Date: 20140711
  Serious: Yes (Hospitalization, Other)
  Sender: FDA-Public Use
  Company Number: US-BAYER-2013-062254

PATIENT
  Age: 15 Year
  Sex: Female
  Weight: 48.53 kg

DRUGS (16)
  1. YAZ [Suspect]
     Indication: OLIGOMENORRHOEA
     Dosage: UNK
     Dates: start: 200808, end: 200902
  2. YAZ [Suspect]
     Indication: ACNE
  3. EXCEDRIN IB [Concomitant]
  4. ISOMETHEPTENE [Concomitant]
  5. MIDRIN [Concomitant]
  6. INDERAL [Concomitant]
     Dosage: 60 MG, UNK
  7. PROPRANOLOL [Concomitant]
     Dosage: 60 MG, QD
     Route: 048
  8. CEFDINIR [Concomitant]
     Dosage: 300 MG, BID
     Route: 048
  9. TRIMOX [AMOXICILLIN TRIHYDRATE] [Concomitant]
     Dosage: 250 MG, TID
     Route: 048
  10. AMITRIPTYLINE [Concomitant]
     Dosage: 10 MG, UNK
     Route: 048
  11. PHENERGAN [Concomitant]
     Dosage: 25 MG, EVERY 6 HOURS
     Route: 048
  12. NAPROXEN [Concomitant]
     Dosage: 250 MG, EVERY 12 HOURS
     Route: 048
  13. ASPIRIN [Concomitant]
  14. BENADRYL N [Concomitant]
  15. REGLAN [Concomitant]
  16. DEPO PROVERA [Concomitant]

REACTIONS (19)
  - Sinusitis [None]
  - Vascular occlusion [None]
  - Pulmonary embolism [None]
  - Retinal artery occlusion [None]
  - Arterial injury [None]
  - Blindness unilateral [None]
  - Vision blurred [None]
  - Vertebral artery hypoplasia [None]
  - Migraine with aura [None]
  - Pain [None]
  - Injury [None]
  - General physical health deterioration [None]
  - Anxiety [None]
  - Emotional distress [None]
  - Pain [None]
  - Visual field defect [None]
  - Photophobia [None]
  - Phonophobia [None]
  - Nausea [None]
